FAERS Safety Report 24961365 (Version 1)
Quarter: 2025Q1

REPORT INFORMATION
  Report Type: Spontaneous
  Country: US (occurrence: None)
  Receive Date: 20250212
  Receipt Date: 20250212
  Transmission Date: 20250408
  Serious: No
  Sender: FDA-CTU
  Company Number: None

PATIENT
  Age: 32 Year
  Sex: Female
  Weight: 88.2 kg

DRUGS (5)
  1. KEFLEX [Suspect]
     Active Substance: CEPHALEXIN
     Indication: Urinary tract infection
     Dosage: OTHER QUANTITY : 1 CAPSULE(S);?FREQUENCY : 4 TIMES A DAY;?
     Route: 048
     Dates: start: 20250210, end: 20250212
  2. CABERGOLINE [Concomitant]
     Active Substance: CABERGOLINE
  3. VITAMIN D [Concomitant]
     Active Substance: VITAMIN D NOS
  4. TYLENOL [Concomitant]
     Active Substance: ACETAMINOPHEN
  5. VITAMIN E [Concomitant]
     Active Substance: .ALPHA.-TOCOPHEROL

REACTIONS (5)
  - Anxiety [None]
  - Paranoia [None]
  - Panic disorder [None]
  - Hypoaesthesia [None]
  - Dissociation [None]

NARRATIVE: CASE EVENT DATE: 20250211
